FAERS Safety Report 7252664-5 (Version None)
Quarter: 2011Q1

REPORT INFORMATION
  Report Type: 
  Country: None (occurrence: None)
  Receive Date: 20110129
  Receipt Date: 20100428
  Transmission Date: 20110831
  Serious: Yes (Other)
  Sender: FDA-Public Use
  Company Number: US-ABBOTT-10P-163-0639398-00

PATIENT
  Sex: Female
  Weight: 72.64 kg

DRUGS (12)
  1. LYRICA [Concomitant]
     Indication: FIBROMYALGIA
     Dosage: 150MG IN AM 225MG IN PM
  2. ZESTRIL [Concomitant]
     Indication: BLOOD PRESSURE
  3. PREDNISONE [Suspect]
     Indication: URTICARIA
     Route: 048
     Dates: start: 20091101
  4. HUMIRA [Suspect]
     Indication: PSORIATIC ARTHROPATHY
  5. ZYRTEC [Suspect]
     Indication: URTICARIA
     Dates: start: 20091101
  6. UNKNOWN STEROID INJECTION [Suspect]
     Indication: URTICARIA
     Dates: start: 20091101, end: 20091101
  7. PROTONIX [Concomitant]
  8. HUMIRA [Suspect]
     Indication: PSORIASIS
     Route: 058
     Dates: start: 20091101
  9. TOPAMAX [Concomitant]
     Indication: MIGRAINE PROPHYLAXIS
  10. CYMBALTA [Concomitant]
     Indication: DEPRESSION
  11. CLARITIN [Concomitant]
     Indication: HYPERSENSITIVITY
  12. SIMVASTATIN [Concomitant]
     Indication: BLOOD CHOLESTEROL

REACTIONS (6)
  - URTICARIA [None]
  - DEVICE MALFUNCTION [None]
  - PSORIASIS [None]
  - GUTTATE PSORIASIS [None]
  - CYSTITIS [None]
  - PRURITUS [None]
